FAERS Safety Report 25489729 (Version 1)
Quarter: 2025Q2

REPORT INFORMATION
  Report Type: Spontaneous
  Country: CN (occurrence: CN)
  Receive Date: 20250627
  Receipt Date: 20250627
  Transmission Date: 20250716
  Serious: Yes (Hospitalization)
  Sender: TEVA
  Company Number: CN-TEVA-VS-3345513

PATIENT
  Age: 42 Year
  Sex: Female
  Weight: 44.5 kg

DRUGS (9)
  1. BENDAMUSTINE [Suspect]
     Active Substance: BENDAMUSTINE
     Indication: Follicular lymphoma
     Route: 042
     Dates: start: 20241204, end: 20250506
  2. OBINUTUZUMAB [Suspect]
     Active Substance: OBINUTUZUMAB
     Indication: Follicular lymphoma
     Dosage: DURING CYCLE 1 (DAY 1, 8, +15), THEN EVERY 4 WEEKS DURING CYCLES 2-6 (ON DAY 1), EVERY 4 WEEKS
     Route: 042
     Dates: start: 20241204
  3. PHOSPHOLIPID [Concomitant]
     Active Substance: PHOSPHOLIPID
     Indication: Aspartate aminotransferase increased
     Route: 065
     Dates: start: 20250318, end: 20250411
  4. ACYCLOVIR [Concomitant]
     Active Substance: ACYCLOVIR
     Indication: Infection prophylaxis
     Route: 065
     Dates: start: 20250205
  5. Human Granulocyte Colony-stimulating Factor [Concomitant]
     Indication: White blood cell count decreased
     Route: 065
     Dates: start: 20250411, end: 20250411
  6. Human Granulocyte Colony-stimulating Factor [Concomitant]
     Indication: White blood cell count decreased
     Route: 065
     Dates: start: 20250429, end: 20250429
  7. Human Granulocyte Colony-stimulating Factor [Concomitant]
     Indication: White blood cell count decreased
     Route: 065
     Dates: start: 20250504, end: 20250504
  8. BICYCLOL [Concomitant]
     Active Substance: BICYCLOL
     Indication: Prophylaxis
     Route: 065
     Dates: start: 20250511
  9. BICYCLOL [Concomitant]
     Active Substance: BICYCLOL
     Indication: Prophylaxis
     Route: 065
     Dates: start: 20250418, end: 20250511

REACTIONS (1)
  - Febrile neutropenia [Recovered/Resolved]

NARRATIVE: CASE EVENT DATE: 20250507
